FAERS Safety Report 4593848-4 (Version None)
Quarter: 2005Q1

REPORT INFORMATION
  Report Type: 
  Country: None (occurrence: None)
  Receive Date: 20050301
  Receipt Date: 20050223
  Transmission Date: 20050727
  Serious: Yes (Hospitalization)
  Sender: FDA-Public Use
  Company Number: 200511632GDDC

PATIENT
  Age: 59 Year
  Sex: Male

DRUGS (2)
  1. DDAVP [Suspect]
     Indication: PROPHYLAXIS
     Dosage: DOSE: 30 UG/100 ML SALINE OVER 30 MINS
     Route: 042
  2. DDAVP [Suspect]
     Indication: SURGERY
     Dosage: DOSE: 30 UG/100 ML SALINE OVER 30 MINS
     Route: 042

REACTIONS (6)
  - ACUTE MYOCARDIAL INFARCTION [None]
  - CORONARY ARTERY THROMBOSIS [None]
  - DIABETES MELLITUS NON-INSULIN-DEPENDENT [None]
  - HYPERLIPIDAEMIA [None]
  - OPERATIVE HAEMORRHAGE [None]
  - SMOKER [None]
